FAERS Safety Report 16643537 (Version 2)
Quarter: 2019Q3

REPORT INFORMATION
  Report Type: Spontaneous
  Country: US (occurrence: US)
  Receive Date: 20190729
  Receipt Date: 20190729
  Transmission Date: 20191004
  Serious: No
  Sender: FDA-Public Use
  Company Number: US-PRINSTON PHARMACEUTICAL INC.-2018PRN01531

PATIENT
  Sex: Female
  Weight: 90.7 kg

DRUGS (10)
  1. LISINOPRIL. [Suspect]
     Active Substance: LISINOPRIL
     Indication: CARDIOMYOPATHY
     Dosage: 5 MG, 1X/DAY
     Route: 048
     Dates: start: 2016, end: 2016
  2. CETIRIZINE [Concomitant]
     Active Substance: CETIRIZINE HYDROCHLORIDE
     Dosage: UNK, 1X/DAY
  3. LISINOPRIL. [Suspect]
     Active Substance: LISINOPRIL
     Indication: CARDIOMYOPATHY
     Dosage: 10 MG, 1X/DAY
     Route: 048
     Dates: start: 2016, end: 2016
  4. PULMICORT TURBUHALER [Concomitant]
     Active Substance: BUDESONIDE
     Dosage: 1 PUFF DAILY
  5. XYZAL [Concomitant]
     Active Substance: LEVOCETIRIZINE DIHYDROCHLORIDE
     Dosage: UNK, AS NEEDED
  6. ALBUTEROL INHALER [Concomitant]
     Active Substance: ALBUTEROL
     Dosage: UNK, AS NEEDED
  7. LISINOPRIL. [Suspect]
     Active Substance: LISINOPRIL
     Indication: CARDIOMYOPATHY
     Dosage: 5 MG, 1X/DAY
     Route: 048
     Dates: start: 2018
  8. UNSPECIFIED MEDICATION FOR NEBULIZER [Concomitant]
     Dosage: UNK, AS NEEDED
  9. DAILY MULTIVITAMIN [Concomitant]
     Active Substance: VITAMINS
  10. VITAMIN D3 [Concomitant]
     Active Substance: CHOLECALCIFEROL
     Dosage: 2000 MG, 1X/DAY

REACTIONS (4)
  - Blood pressure systolic increased [Recovered/Resolved]
  - Vertigo [Not Recovered/Not Resolved]
  - Product substitution issue [Not Recovered/Not Resolved]
  - Dizziness [Not Recovered/Not Resolved]
